FAERS Safety Report 8477105-1 (Version None)
Quarter: 2012Q2

REPORT INFORMATION
  Report Type: 
  Country: None (occurrence: None)
  Receive Date: 20120629
  Receipt Date: 20120625
  Transmission Date: 20120825
  Serious: No
  Sender: FDA-Public Use
  Company Number: US-PFIZER INC-2012153187

PATIENT
  Sex: Female
  Weight: 70.295 kg

DRUGS (6)
  1. PREMARIN [Suspect]
     Indication: VULVOVAGINAL DRYNESS
     Dosage: UNK
  2. SYNTHROID [Concomitant]
     Dosage: 137 MG, ALTERNATE DAY
  3. SYNTHROID [Concomitant]
     Indication: THYROID DISORDER
     Dosage: 150 MG, ALTERNATE DAY
  4. RANITIDINE [Concomitant]
     Indication: ABDOMINAL DISCOMFORT
     Dosage: 0.045 MG, AS NEEDED
  5. VITAMIN D [Concomitant]
     Dosage: UNK, CYCLIC
  6. CALCIUM [Concomitant]
     Dosage: UNK, 1X/DAY

REACTIONS (1)
  - DRUG INEFFECTIVE [None]
